FAERS Safety Report 5832585-2 (Version None)
Quarter: 2008Q3

REPORT INFORMATION
  Report Type: 
  Country: None (occurrence: None)
  Receive Date: 20080804
  Receipt Date: 20080722
  Transmission Date: 20090109
  Serious: Yes (Hospitalization, Other)
  Sender: FDA-Public Use
  Company Number: PHHY2008IE15964

PATIENT
  Sex: Male

DRUGS (1)
  1. CLOZARIL [Suspect]
     Indication: SCHIZOPHRENIA
     Dosage: UNK
     Route: 048
     Dates: start: 20040123

REACTIONS (4)
  - CONFUSIONAL STATE [None]
  - DEMENTIA [None]
  - MEMORY IMPAIRMENT [None]
  - NEGLECT OF PERSONAL APPEARANCE [None]
